FAERS Safety Report 23266592 (Version 3)
Quarter: 2024Q1

REPORT INFORMATION
  Report Type: Spontaneous
  Country: CA (occurrence: CA)
  Receive Date: 20231206
  Receipt Date: 20240315
  Transmission Date: 20240409
  Serious: Yes (Death, Hospitalization, Other)
  Sender: FDA-Public Use
  Company Number: CA-002147023-NVSC2020CA102257

PATIENT
  Age: 64 Year
  Sex: Female

DRUGS (28)
  1. CELEBREX [Suspect]
     Active Substance: CELECOXIB
     Indication: Pain
     Dosage: 200 UG
     Route: 058
  2. DIOVAN [Suspect]
     Active Substance: VALSARTAN
     Indication: Product used for unknown indication
     Dosage: 20 MG, QMO
     Route: 030
  3. DIOVAN [Suspect]
     Active Substance: VALSARTAN
     Dosage: 20 MG, QMO
     Route: 030
  4. DIOVAN [Suspect]
     Active Substance: VALSARTAN
     Dosage: 80 MG, QD
     Route: 048
  5. PANTOPRAZOLE [Suspect]
     Active Substance: PANTOPRAZOLE
     Indication: Product used for unknown indication
     Dosage: 200 UG, TID
     Route: 058
  6. PANTOPRAZOLE [Suspect]
     Active Substance: PANTOPRAZOLE
     Dosage: 40 MG, QD
     Route: 048
  7. PANTOPRAZOLE [Suspect]
     Active Substance: PANTOPRAZOLE
     Dosage: 600 UG, QD  (200 UG, TID)
     Route: 065
  8. SANDOSTATIN [Suspect]
     Active Substance: OCTREOTIDE ACETATE
     Dosage: 30 MG, QMO
     Route: 030
  9. SANDOSTATIN [Suspect]
     Active Substance: OCTREOTIDE ACETATE
     Dosage: 20 MG, QMO
     Route: 030
  10. SANDOSTATIN [Suspect]
     Active Substance: OCTREOTIDE ACETATE
     Dosage: 30 MG, QMO
     Route: 030
  11. SANDOSTATIN [Suspect]
     Active Substance: OCTREOTIDE ACETATE
     Dosage: 300 UG, QD  (100 UG, TID)
     Route: 058
  12. SANDOSTATIN [Suspect]
     Active Substance: OCTREOTIDE ACETATE
     Dosage: 50 MG, QMO
     Route: 030
  13. SANDOSTATIN [Suspect]
     Active Substance: OCTREOTIDE ACETATE
     Dosage: 60 MG, QMO
     Route: 030
  14. SANDOSTATIN [Suspect]
     Active Substance: OCTREOTIDE ACETATE
     Dosage: 600 UG, QD (200 UG, TID)
     Route: 065
  15. SANDOSTATIN [Suspect]
     Active Substance: OCTREOTIDE ACETATE
     Dosage: 200 UG
     Route: 058
  16. SANDOSTATIN [Suspect]
     Active Substance: OCTREOTIDE ACETATE
     Indication: Gastroenteropancreatic neuroendocrine tumour disease
     Dosage: 20 MG, QMO
     Route: 030
  17. SANDOSTATIN [Suspect]
     Active Substance: OCTREOTIDE ACETATE
     Dosage: 200 UG, TID
     Route: 058
  18. VALSARTAN [Suspect]
     Active Substance: VALSARTAN
     Dosage: 160 MG, QD
     Route: 065
  19. VALSARTAN [Suspect]
     Active Substance: VALSARTAN
     Indication: Product used for unknown indication
     Dosage: 30 MG, QMO
     Route: 030
  20. VALSARTAN [Suspect]
     Active Substance: VALSARTAN
     Dosage: 30 MG, QMO
     Route: 065
  21. CLONAZEPAM [Concomitant]
     Active Substance: CLONAZEPAM
     Dosage: 2 MG
     Route: 048
  22. CLONAZEPAM [Concomitant]
     Active Substance: CLONAZEPAM
     Dosage: 2 MG
     Route: 065
  23. CLONAZEPAM [Concomitant]
     Active Substance: CLONAZEPAM
     Indication: Product used for unknown indication
     Dosage: 50 MG, QMO
     Route: 030
  24. DILTIAZEM [Concomitant]
     Active Substance: DILTIAZEM
     Indication: Product used for unknown indication
     Dosage: 100 UG, TID
     Route: 058
  25. DILTIAZEM [Concomitant]
     Active Substance: DILTIAZEM
     Dosage: 160 MG, QD
     Route: 048
  26. DILTIAZEM [Concomitant]
     Active Substance: DILTIAZEM
     Dosage: 300 UG, QD  (100 UG, TID)
     Route: 065
  27. IMODIUM [Concomitant]
     Active Substance: LOPERAMIDE HYDROCHLORIDE
     Indication: Product used for unknown indication
     Dosage: 30 MG, QMO
     Route: 030
  28. IMODIUM [Concomitant]
     Active Substance: LOPERAMIDE HYDROCHLORIDE
     Dosage: UNK
     Route: 065

REACTIONS (38)
  - Alopecia [Fatal]
  - Blood pressure diastolic decreased [Fatal]
  - Blood pressure increased [Fatal]
  - Brain neoplasm [Fatal]
  - Cerebrovascular accident [Fatal]
  - Chest pain [Fatal]
  - Coma [Fatal]
  - Confusional state [Fatal]
  - Constipation [Fatal]
  - Cough [Fatal]
  - Death [Fatal]
  - Decreased appetite [Fatal]
  - Ear pain [Fatal]
  - Flushing [Fatal]
  - Heart rate decreased [Fatal]
  - Hepatic pain [Fatal]
  - Injection site pain [Fatal]
  - Loss of consciousness [Fatal]
  - Memory impairment [Fatal]
  - Oedema peripheral [Fatal]
  - Oropharyngeal pain [Fatal]
  - Osteoarthritis [Fatal]
  - Pain [Fatal]
  - Pain in extremity [Fatal]
  - Pancreatic disorder [Fatal]
  - Pneumonia [Fatal]
  - Second primary malignancy [Fatal]
  - Rhinorrhoea [Fatal]
  - Cardiac disorder [Fatal]
  - Abdominal distension [Fatal]
  - Back pain [Fatal]
  - Fatigue [Fatal]
  - Diarrhoea [Fatal]
  - Abdominal pain [Fatal]
  - Headache [Fatal]
  - Myalgia [Fatal]
  - Nausea [Fatal]
  - Drug ineffective [Fatal]
